FAERS Safety Report 25984148 (Version 1)
Quarter: 2025Q4

REPORT INFORMATION
  Report Type: Spontaneous
  Country: CN (occurrence: CN)
  Receive Date: 20251031
  Receipt Date: 20251031
  Transmission Date: 20260118
  Serious: Yes (Other)
  Sender: BEIGENE
  Company Number: CN-BEIGENE-BGN-2025-018511

PATIENT
  Age: 59 Year
  Weight: 35 kg

DRUGS (6)
  1. TISLELIZUMAB [Suspect]
     Active Substance: TISLELIZUMAB
     Indication: Gallbladder cancer recurrent
     Dosage: 200 MILLIGRAM
  2. TISLELIZUMAB [Suspect]
     Active Substance: TISLELIZUMAB
     Dosage: 200 MILLIGRAM
     Route: 041
  3. TISLELIZUMAB [Suspect]
     Active Substance: TISLELIZUMAB
     Dosage: 200 MILLIGRAM
     Route: 041
  4. TISLELIZUMAB [Suspect]
     Active Substance: TISLELIZUMAB
     Dosage: 200 MILLIGRAM
  5. CAPECITABINE [Concomitant]
     Active Substance: CAPECITABINE
     Indication: Gallbladder cancer recurrent
     Dosage: 1.5 GRAM, BID (D1-14)
  6. LENVATINIB MESYLATE [Concomitant]
     Active Substance: LENVATINIB MESYLATE
     Indication: Gallbladder cancer recurrent
     Dosage: 8 MILLIGRAM, QD

REACTIONS (5)
  - Hypothyroidism [Not Recovered/Not Resolved]
  - Myocardial necrosis marker increased [Unknown]
  - Neoplasm progression [Unknown]
  - Metastases to liver [Unknown]
  - Thyroid function test abnormal [Unknown]
